FAERS Safety Report 6360547-8 (Version None)
Quarter: 2009Q3

REPORT INFORMATION
  Report Type: 
  Country: None (occurrence: None)
  Receive Date: 20090917
  Receipt Date: 20090908
  Transmission Date: 20100115
  Serious: Yes (Other)
  Sender: FDA-Public Use
  Company Number: JP-ABBOTT-09P-087-0597642-00

PATIENT
  Age: 79 Year
  Sex: Male

DRUGS (4)
  1. LEUPLIN SR FOR INJECTION 11.25 MG [Suspect]
     Indication: PROSTATE CANCER STAGE II
     Route: 058
     Dates: start: 20080516
  2. URIEF [Concomitant]
     Indication: BENIGN PROSTATIC HYPERPLASIA
     Route: 048
     Dates: end: 20090416
  3. UBRETID [Concomitant]
     Indication: NEUROGENIC BLADDER
     Route: 048
     Dates: end: 20080617
  4. CASODEX [Concomitant]
     Indication: PROSTATE CANCER STAGE II
     Route: 048
     Dates: start: 20080502

REACTIONS (1)
  - URINARY RETENTION [None]
